FAERS Safety Report 18420586 (Version 3)
Quarter: 2021Q3

REPORT INFORMATION
  Report Type: Spontaneous
  Country: JP (occurrence: JP)
  Receive Date: 20201023
  Receipt Date: 20210916
  Transmission Date: 20211014
  Serious: Yes (Life-Threatening, Hospitalization, Disabling, Other)
  Sender: FDA-Public Use
  Company Number: JP-009507513-2010JPN001959J

PATIENT
  Age: 54 Year
  Sex: Female
  Weight: 42 kg

DRUGS (9)
  1. DEXART [Concomitant]
     Active Substance: DEXAMETHASONE SODIUM PHOSPHATE
     Indication: CHEMOTHERAPY SIDE EFFECT PROPHYLAXIS
     Dosage: 10 MILLIGRAM, QD
     Route: 041
     Dates: start: 20200908
  2. OLANZAPINE. [Concomitant]
     Active Substance: OLANZAPINE
     Indication: CHEMOTHERAPY SIDE EFFECT PROPHYLAXIS
     Dosage: 2.5 MILLIGRAM, QD
     Route: 048
     Dates: start: 20200907, end: 20200915
  3. PROEMEND [Concomitant]
     Active Substance: FOSAPREPITANT
     Indication: CHEMOTHERAPY SIDE EFFECT PROPHYLAXIS
     Dosage: 150 MILLIGRAM, QD
     Route: 041
     Dates: start: 20200908
  4. CISPLATIN. [Concomitant]
     Active Substance: CISPLATIN
     Indication: PHARYNGEAL CANCER STAGE IV
     Dosage: 75 MILLIGRAM/SQ. METER, Q3W
     Route: 042
     Dates: start: 20200908, end: 2020
  5. MANNITOL. [Concomitant]
     Active Substance: MANNITOL
     Indication: CHEMOTHERAPY SIDE EFFECT PROPHYLAXIS
     Dosage: 300 MILLILITER, QD
     Route: 041
     Dates: start: 20200908
  6. TAKECAB [Concomitant]
     Active Substance: VONOPRAZAN FUMARATE
     Indication: CHEMOTHERAPY SIDE EFFECT PROPHYLAXIS
     Dosage: 20 MILLIGRAM, QD
     Route: 048
     Dates: start: 20200909, end: 20210104
  7. KEYTRUDA [Suspect]
     Active Substance: PEMBROLIZUMAB
     Indication: PHARYNGEAL CANCER STAGE IV
     Dosage: 200 MILLIGRAM, Q3W
     Route: 041
     Dates: start: 20200908, end: 20200908
  8. FLUOROURACIL. [Concomitant]
     Active Substance: FLUOROURACIL
     Indication: PHARYNGEAL CANCER STAGE IV
     Dosage: 750 MILLIGRAM/SQ. METER, Q3W
     Route: 042
     Dates: start: 20200908, end: 20200911
  9. ALOXI [Concomitant]
     Active Substance: PALONOSETRON HYDROCHLORIDE
     Indication: CHEMOTHERAPY SIDE EFFECT PROPHYLAXIS
     Dosage: 0.75 MILLIGRAM, QD
     Route: 041
     Dates: start: 20200908

REACTIONS (4)
  - Thrombophlebitis migrans [Unknown]
  - Cerebral artery embolism [Recovered/Resolved with Sequelae]
  - Carotid arterial embolus [Recovered/Resolved with Sequelae]
  - Cerebral infarction [Recovered/Resolved with Sequelae]

NARRATIVE: CASE EVENT DATE: 20200916
